FAERS Safety Report 12353098 (Version 1)
Quarter: 2016Q2

REPORT INFORMATION
  Report Type: Spontaneous
  Country: US (occurrence: US)
  Receive Date: 20160510
  Receipt Date: 20160510
  Transmission Date: 20160815
  Serious: Yes (Other)
  Sender: FDA-Public Use
  Company Number: US-MDT-ADR-2015-02380

PATIENT
  Age: 49 Year
  Sex: Male

DRUGS (1)
  1. LIORESAL [Suspect]
     Active Substance: BACLOFEN
     Dosage: 1,248.9 MCG/DAY
     Route: 037

REACTIONS (11)
  - Sinus tachycardia [Recovered/Resolved]
  - Implant site extravasation [Recovered/Resolved]
  - Implant site infection [Recovered/Resolved]
  - Electrocardiogram abnormal [Recovered/Resolved]
  - Hypotension [Recovered/Resolved]
  - Hyperhidrosis [Recovered/Resolved]
  - Medical device site swelling [Recovered/Resolved]
  - Pyrexia [Recovered/Resolved]
  - Medical device site discharge [Recovered/Resolved]
  - Staphylococcal infection [Recovered/Resolved]
  - Purulence [Recovered/Resolved]
